FAERS Safety Report 15603618 (Version 1)
Quarter: 2018Q4

REPORT INFORMATION
  Report Type: Spontaneous
  Country: US (occurrence: US)
  Receive Date: 20181109
  Receipt Date: 20181109
  Transmission Date: 20190205
  Serious: Yes (Other)
  Sender: FDA-Public Use
  Company Number: US-JNJFOC-20181045865

PATIENT
  Age: 49 Year
  Sex: Male

DRUGS (1)
  1. EVICEL [Suspect]
     Active Substance: FIBRINOGEN HUMAN\THROMBIN HUMAN
     Indication: TISSUE SEALING
     Route: 061

REACTIONS (6)
  - Abdominal distension [Unknown]
  - Pneumonia [Unknown]
  - Abdominal pain [Unknown]
  - Product use in unapproved indication [Unknown]
  - Skin infection [Unknown]
  - Off label use [Unknown]
